FAERS Safety Report 7530497-X (Version None)
Quarter: 2011Q2

REPORT INFORMATION
  Report Type: 
  Country: None (occurrence: None)
  Receive Date: 20110607
  Receipt Date: 20110526
  Transmission Date: 20111010
  Serious: Yes (Other)
  Sender: FDA-Public Use
  Company Number: US-ASTRAZENECA-2011SE32300

PATIENT
  Age: 67 Year
  Sex: Female
  Weight: 88 kg

DRUGS (2)
  1. SEROQUEL XR [Suspect]
     Indication: BIPOLAR DISORDER
     Route: 048
     Dates: start: 20070101
  2. SIMVASTATIN [Concomitant]

REACTIONS (4)
  - BONE NEOPLASM MALIGNANT [None]
  - CHEMOTHERAPY [None]
  - AMNESIA [None]
  - RADIOTHERAPY [None]
